FAERS Safety Report 10274285 (Version 2)
Quarter: 2014Q2

REPORT INFORMATION
  Report Type: Spontaneous
  Country: US (occurrence: US)
  Receive Date: 20140625
  Receipt Date: 20140625
  Transmission Date: 20141212
  Serious: Yes (Other)
  Sender: FDA-Public Use
  Company Number: US-ASTELLAS-2014US004246

PATIENT
  Age: 84 Year
  Sex: Female

DRUGS (7)
  1. VESICARE [Suspect]
     Indication: URINARY INCONTINENCE
     Route: 048
     Dates: start: 20140412
  2. VESICARE [Suspect]
     Indication: MICTURITION URGENCY
     Dosage: 0.5 DF, ONCE DAILY
     Route: 048
  3. VESICARE [Suspect]
     Dosage: 0.75 DF, ONCE DAILY
     Route: 048
  4. ASPIRIN [Concomitant]
     Indication: PRODUCT USED FOR UNKNOWN INDICATION
     Dosage: UNK UNK, UNKNOWN FREQ.
     Route: 065
  5. PRAVASTATIN [Concomitant]
     Indication: PRODUCT USED FOR UNKNOWN INDICATION
     Dosage: UNK UNK, UNKNOWN FREQ.
     Route: 065
  6. LABETALOL [Concomitant]
     Indication: PRODUCT USED FOR UNKNOWN INDICATION
     Dosage: UNK UNK, UNKNOWN FREQ.
     Route: 065
  7. TEMAZEPAM [Concomitant]
     Indication: SLEEP DISORDER
     Dosage: UNK UNK, UNKNOWN FREQ.
     Route: 065

REACTIONS (5)
  - Urinary retention [Not Recovered/Not Resolved]
  - Muscle spasms [Unknown]
  - Micturition urgency [Unknown]
  - Intentional product misuse [Unknown]
  - Off label use [Unknown]
